FAERS Safety Report 8521510-1 (Version None)
Quarter: 2012Q3

REPORT INFORMATION
  Report Type: 
  Country: None (occurrence: None)
  Receive Date: 20120719
  Receipt Date: 20120705
  Transmission Date: 20120928
  Serious: Yes (Hospitalization, Other)
  Sender: FDA-Public Use
  Company Number: PHHY2012FR060728

PATIENT
  Sex: Male

DRUGS (7)
  1. CANDESARTAN CILEXETIL AND HYDROCHLOROTHIAZIDE [Suspect]
     Indication: HYPERTENSION
     Dosage: 16 MG/12.5MG, 1 DF, QD
     Route: 048
     Dates: end: 20120119
  2. FLUVASTATIN SODIUM [Suspect]
     Route: 048
     Dates: end: 20120119
  3. ALLOPURINOL [Concomitant]
     Dosage: 1 DF, QD
     Route: 048
  4. DIAMICRON [Concomitant]
     Indication: TYPE 2 DIABETES MELLITUS
  5. DICLOFENAC POTASSIUM [Suspect]
  6. METFORMIN HCL [Concomitant]
     Indication: PANCREATITIS ACUTE
  7. NUTROF [Concomitant]

REACTIONS (4)
  - ABDOMINAL PAIN [None]
  - CHOLELITHIASIS [None]
  - INFLAMMATION [None]
  - PANCREATITIS ACUTE [None]
